FAERS Safety Report 7521064-2 (Version None)
Quarter: 2011Q2

REPORT INFORMATION
  Report Type: 
  Country: None (occurrence: None)
  Receive Date: 20110603
  Receipt Date: 20100930
  Transmission Date: 20111010
  Serious: No
  Sender: FDA-Public Use
  Company Number: US-BAYER-201038295NA

PATIENT
  Sex: Female
  Weight: 121.54 kg

DRUGS (10)
  1. IBUPROFEN [Concomitant]
     Indication: INFLAMMATION
     Dosage: 800 UNK, UNK
     Route: 048
     Dates: start: 20040821
  2. RANITIDINE [Concomitant]
     Indication: GASTROOESOPHAGEAL REFLUX DISEASE
     Dosage: 150 MG, UNK
     Route: 048
     Dates: start: 20010810
  3. METFORMIN HCL [Concomitant]
     Indication: DIABETES MELLITUS
     Dosage: 1000 UNK, UNK
     Route: 048
     Dates: start: 20041217
  4. FLUPHENAZINE DECANOATE [Concomitant]
     Indication: PRODUCT USED FOR UNKNOWN INDICATION
     Dosage: 5 MG/ML, UNK
     Route: 023
     Dates: start: 20040831
  5. DROSPIRENONE AND ETHINYL ESTRADIOL [Suspect]
     Indication: ACNE
     Dosage: UNK
     Dates: start: 20040101, end: 20040101
  6. DEPO-PROVERA [Concomitant]
     Indication: CONTRACEPTION
     Dosage: 150 UNK, UNK
     Route: 030
     Dates: start: 19970801
  7. HYDROCHLOROTHIAZIDE [Concomitant]
     Indication: DIURETIC THERAPY
     Dosage: 25 MG, UNK
     Route: 048
     Dates: start: 20030416
  8. CLARITIN-D 24 HOUR [Concomitant]
     Indication: HISTAMINE ABNORMAL
     Dosage: UNK
     Route: 048
     Dates: start: 20010810
  9. YAZ [Suspect]
     Indication: ACNE
     Dosage: UNK
     Dates: start: 20040101, end: 20040101
  10. YASMIN [Suspect]
     Indication: ACNE
     Dosage: UNK
     Dates: start: 20040101, end: 20040101

REACTIONS (1)
  - GALLBLADDER DISORDER [None]
